FAERS Safety Report 4322125-1 (Version None)
Quarter: 2004Q1

REPORT INFORMATION
  Report Type: 
  Country: None (occurrence: None)
  Receive Date: 20040319
  Receipt Date: 20040310
  Transmission Date: 20041129
  Serious: Yes (Hospitalization, Other)
  Sender: FDA-Public Use
  Company Number: 2004-03-0831

PATIENT
  Age: 64 Year
  Sex: Male

DRUGS (2)
  1. INTERFERON ALFA INJECTABLE SOLUTION [Suspect]
     Indication: HEPATITIS C
     Dosage: SUBCUTANEOUS
     Route: 058
  2. RIBAVIRIN [Suspect]
     Indication: HEPATITIS C
     Dosage: ORAL
     Route: 048

REACTIONS (5)
  - DIPLOPIA [None]
  - EYELID PTOSIS [None]
  - FATIGUE [None]
  - NEOPLASM OF THYMUS [None]
  - OCULAR MYASTHENIA [None]
